FAERS Safety Report 12473963 (Version 5)
Quarter: 2017Q2

REPORT INFORMATION
  Report Type: Spontaneous
  Country: JP (occurrence: JP)
  Receive Date: 20160616
  Receipt Date: 20170518
  Transmission Date: 20170830
  Serious: Yes (Hospitalization, Other)
  Sender: FDA-Public Use
  Company Number: JP-TAKEDA-2016MPI005555

PATIENT
  Age: 70 Year
  Sex: Female
  Weight: 59.3 kg

DRUGS (203)
  1. GRAN [Concomitant]
     Active Substance: FILGRASTIM
     Dosage: 75 ?G, QD
     Route: 042
     Dates: start: 20160524, end: 20160525
  2. CALONAL [Concomitant]
     Active Substance: ACETAMINOPHEN
     Dosage: 400 MG, UNK
     Route: 048
     Dates: start: 20160322, end: 20160412
  3. CALONAL [Concomitant]
     Active Substance: ACETAMINOPHEN
     Dosage: 400 MG, UNK
     Route: 048
     Dates: start: 20160518, end: 20160607
  4. SENNOSIDE [Concomitant]
     Active Substance: SENNOSIDES
     Indication: COLONOSCOPY
     Dosage: 24 MG, UNK
     Route: 048
     Dates: start: 20160322, end: 20160322
  5. BAKTAR [Concomitant]
     Active Substance: SULFAMETHOXAZOLE\TRIMETHOPRIM
     Indication: ANTIFUNGAL PROPHYLAXIS
     Dosage: UNK
     Route: 048
     Dates: start: 20160328, end: 20160409
  6. TERPERAN [Concomitant]
     Active Substance: METOCLOPRAMIDE HYDROCHLORIDE
     Indication: VOMITING
     Dosage: 5 MG, TID
     Route: 048
     Dates: start: 20160329, end: 20160402
  7. TERPERAN [Concomitant]
     Active Substance: METOCLOPRAMIDE HYDROCHLORIDE
     Dosage: 5 MG, TID
     Route: 048
     Dates: start: 20160429, end: 20160501
  8. METHYCOBAL [Concomitant]
     Active Substance: METHYLCOBALAMIN
     Indication: PROPHYLAXIS
     Dosage: 0.5 MG, UNK
     Route: 042
     Dates: start: 20160405, end: 20160405
  9. LOXOPROFEN SODIUM [Concomitant]
     Active Substance: LOXOPROFEN SODIUM
     Dosage: 60 MG, UNK
     Route: 048
     Dates: start: 20160413, end: 20160506
  10. LOPERAMIDE [Concomitant]
     Active Substance: LOPERAMIDE
     Dosage: 1 MG, BID
     Route: 048
     Dates: start: 20160430, end: 20160501
  11. LOPERAMIDE [Concomitant]
     Active Substance: LOPERAMIDE
     Dosage: 1 MG, TID
     Route: 048
     Dates: start: 20160501, end: 20160503
  12. RINDERON VG [Concomitant]
     Active Substance: BETAMETHASONE VALERATE\GENTAMICIN SULFATE
     Dosage: UNK
     Route: 061
     Dates: start: 20160409, end: 20160419
  13. XYLOCAINE [Concomitant]
     Active Substance: LIDOCAINE HYDROCHLORIDE
     Indication: ENDOSCOPY UPPER GASTROINTESTINAL TRACT
     Dosage: 0.5 MG, UNK
     Route: 048
     Dates: start: 20160411, end: 20160411
  14. SAXIZON [Concomitant]
     Active Substance: HYDROCORTISONE SODIUM SUCCINATE
     Dosage: 100 MG, UNK
     Route: 042
     Dates: start: 20160428, end: 20160429
  15. SAXIZON [Concomitant]
     Active Substance: HYDROCORTISONE SODIUM SUCCINATE
     Dosage: 40 MG, UNK
     Route: 042
     Dates: start: 20160521, end: 20160529
  16. SAXIZON [Concomitant]
     Active Substance: HYDROCORTISONE SODIUM SUCCINATE
     Dosage: 100 MG, UNK
     Route: 042
     Dates: start: 20160428, end: 20160429
  17. SAXIZON [Concomitant]
     Active Substance: HYDROCORTISONE SODIUM SUCCINATE
     Dosage: 100 MG, UNK
     Route: 042
     Dates: start: 20160425, end: 20160425
  18. SAXIZON [Concomitant]
     Active Substance: HYDROCORTISONE SODIUM SUCCINATE
     Dosage: 100 MG, UNK
     Route: 042
     Dates: start: 20160428, end: 20160429
  19. POLARAMINE [Concomitant]
     Active Substance: DEXCHLORPHENIRAMINE MALEATE
     Dosage: 5 MG, UNK
     Route: 042
     Dates: start: 20160530, end: 20160530
  20. ZOSYN [Concomitant]
     Active Substance: PIPERACILLIN SODIUM\TAZOBACTAM SODIUM
     Dosage: 4.5 MG, UNK
     Route: 042
     Dates: start: 20160521, end: 20160521
  21. ZOSYN [Concomitant]
     Active Substance: PIPERACILLIN SODIUM\TAZOBACTAM SODIUM
     Dosage: 4.5 MG, UNK
     Route: 042
     Dates: start: 20160412, end: 20160412
  22. ZOSYN [Concomitant]
     Active Substance: PIPERACILLIN SODIUM\TAZOBACTAM SODIUM
     Dosage: 4.5 MG, UNK
     Route: 042
     Dates: start: 20160429, end: 20160502
  23. ZOSYN [Concomitant]
     Active Substance: PIPERACILLIN SODIUM\TAZOBACTAM SODIUM
     Dosage: 4.5 MG, UNK
     Route: 042
     Dates: start: 20160520, end: 20160520
  24. ZOSYN [Concomitant]
     Active Substance: PIPERACILLIN SODIUM\TAZOBACTAM SODIUM
     Dosage: 4.5 MG, UNK
     Route: 042
     Dates: start: 20160413, end: 20160418
  25. TRAMAL [Concomitant]
     Active Substance: TRAMADOL
     Indication: SPINAL COMPRESSION FRACTURE
     Dosage: 25 MG, UNK
     Route: 048
     Dates: start: 20160411, end: 20160411
  26. CALCIUM LACTATE [Concomitant]
     Active Substance: CALCIUM LACTATE
     Indication: PROPHYLAXIS
     Dosage: 1 G, TID
     Route: 048
     Dates: start: 20160413, end: 20160515
  27. LAC-B [Concomitant]
     Active Substance: BIFIDOBACTERIUM SPP.
     Indication: GASTRITIS
     Dosage: 1 G, TID
     Route: 048
     Dates: start: 20160414
  28. XYZAL [Concomitant]
     Active Substance: LEVOCETIRIZINE DIHYDROCHLORIDE
     Indication: RASH
     Dosage: 5 MG, UNK
     Route: 048
     Dates: start: 20160527, end: 20160603
  29. PREDONINE [Concomitant]
     Active Substance: PREDNISOLONE
     Indication: RASH
     Dosage: 10 MG, UNK
     Route: 048
     Dates: start: 20160502, end: 20160508
  30. FUROSEMIDE. [Concomitant]
     Active Substance: FUROSEMIDE
     Indication: GENERALISED OEDEMA
     Dosage: 2 ML, UNK
     Route: 042
     Dates: start: 20160522, end: 20160602
  31. LOCOID [Concomitant]
     Active Substance: HYDROCORTISONE BUTYRATE
     Indication: RASH
     Dosage: UNK
     Route: 061
     Dates: start: 20160527, end: 20160602
  32. K-SUPPLY [Concomitant]
     Active Substance: POTASSIUM CHLORIDE
     Indication: PROPHYLAXIS
     Dosage: 1200 MG, TID
     Route: 048
     Dates: start: 20160531, end: 20160603
  33. K-SUPPLY [Concomitant]
     Active Substance: POTASSIUM CHLORIDE
     Dosage: 1200 MG, TID
     Route: 048
     Dates: start: 20160603, end: 20160621
  34. GRAN [Concomitant]
     Active Substance: FILGRASTIM
     Indication: NEUTROPHIL COUNT DECREASED
     Dosage: 75 ?G, UNK
     Route: 042
     Dates: start: 20160406, end: 20160406
  35. GRAN [Concomitant]
     Active Substance: FILGRASTIM
     Dosage: 75 ?G, UNK
     Route: 042
     Dates: start: 20160516, end: 20160516
  36. IRBESARTAN. [Concomitant]
     Active Substance: IRBESARTAN
     Dosage: 100 MG, QD
     Route: 048
     Dates: start: 20160412, end: 20160515
  37. AMLODIPINE [Concomitant]
     Active Substance: AMLODIPINE BESYLATE
     Indication: HYPERTENSION
     Dosage: 10 MG, QD
     Route: 048
     Dates: end: 20160409
  38. GASTER [Concomitant]
     Active Substance: FAMOTIDINE
     Indication: GASTRITIS
     Dosage: 20 MG, QD
     Route: 048
     Dates: end: 20160409
  39. DEPAS [Concomitant]
     Active Substance: ETIZOLAM
     Indication: ANXIETY
     Dosage: 0.5 MG, UNK
     Route: 048
     Dates: end: 20160317
  40. CALONAL [Concomitant]
     Active Substance: ACETAMINOPHEN
     Indication: PNEUMONIA
     Dosage: 400 MG, UNK
     Route: 048
     Dates: start: 20160518, end: 20160607
  41. BAROS ANTIFOAMING [Concomitant]
     Indication: ENDOSCOPY UPPER GASTROINTESTINAL TRACT
     Dosage: 5 ML, UNK
     Route: 048
     Dates: start: 20160323, end: 20160323
  42. ANETOCAINE [Concomitant]
     Indication: COLONOSCOPY
     Dosage: 30 ML, UNK
     Route: 050
     Dates: start: 20160411, end: 20160411
  43. MIDAZOLAM [Concomitant]
     Active Substance: MIDAZOLAM HYDROCHLORIDE
     Indication: COLONOSCOPY
     Dosage: 30 MG, UNK
     Route: 042
     Dates: start: 20160323, end: 20160323
  44. ACICLOVIR [Concomitant]
     Active Substance: ACYCLOVIR
     Indication: PROPHYLAXIS
     Dosage: 200 MG, QD
     Route: 048
     Dates: start: 20160328, end: 20160409
  45. TERPERAN [Concomitant]
     Active Substance: METOCLOPRAMIDE HYDROCHLORIDE
     Dosage: 5 MG, UNK
     Route: 048
     Dates: start: 20160428, end: 20160429
  46. TERPERAN [Concomitant]
     Active Substance: METOCLOPRAMIDE HYDROCHLORIDE
     Dosage: 5 MG, TID
     Route: 048
     Dates: start: 20160329, end: 20160402
  47. LOPERAMIDE [Concomitant]
     Active Substance: LOPERAMIDE
     Dosage: 1 MG, TID
     Route: 048
     Dates: start: 20160501, end: 20160503
  48. RINDERON VG [Concomitant]
     Active Substance: BETAMETHASONE VALERATE\GENTAMICIN SULFATE
     Indication: RASH
     Dosage: UNK
     Route: 061
     Dates: start: 20160423, end: 20160427
  49. SOLYUGEN F [Concomitant]
     Indication: OESOPHAGEAL RUPTURE
     Dosage: 500 ML, UNK
     Route: 042
     Dates: start: 20160409, end: 20160409
  50. CALCICOL [Concomitant]
     Active Substance: CALCIUM GLUCONATE
     Indication: HYPOCALCAEMIA
     Dosage: 10 ML, UNK
     Route: 042
     Dates: start: 20160516, end: 20160516
  51. ARCRANE [Concomitant]
     Indication: OESOPHAGEAL RUPTURE
     Dosage: 5 ML, TID
     Route: 048
     Dates: start: 20160409, end: 20160411
  52. SAXIZON [Concomitant]
     Active Substance: HYDROCORTISONE SODIUM SUCCINATE
     Indication: PROPHYLAXIS
     Dosage: 100 MG, UNK
     Route: 042
     Dates: start: 20160415, end: 20160417
  53. SAXIZON [Concomitant]
     Active Substance: HYDROCORTISONE SODIUM SUCCINATE
     Indication: TRANSFUSION REACTION
     Dosage: 100 MG, UNK
     Route: 042
     Dates: start: 20160419, end: 20160419
  54. SAXIZON [Concomitant]
     Active Substance: HYDROCORTISONE SODIUM SUCCINATE
     Dosage: 100 MG, UNK
     Route: 042
     Dates: start: 20160414, end: 20160414
  55. SAXIZON [Concomitant]
     Active Substance: HYDROCORTISONE SODIUM SUCCINATE
     Dosage: 100 MG, UNK
     Route: 042
     Dates: start: 20160530, end: 20160530
  56. SAXIZON [Concomitant]
     Active Substance: HYDROCORTISONE SODIUM SUCCINATE
     Dosage: 100 MG, UNK
     Route: 042
     Dates: start: 20160414, end: 20160414
  57. SAXIZON [Concomitant]
     Active Substance: HYDROCORTISONE SODIUM SUCCINATE
     Dosage: 100 MG, UNK
     Route: 042
     Dates: start: 20160301, end: 20160301
  58. POLARAMINE [Concomitant]
     Active Substance: DEXCHLORPHENIRAMINE MALEATE
     Indication: RASH
     Dosage: 100 MG, UNK
     Route: 042
     Dates: start: 20160415, end: 20160417
  59. ZOSYN [Concomitant]
     Active Substance: PIPERACILLIN SODIUM\TAZOBACTAM SODIUM
     Indication: PYREXIA
     Dosage: 4.5 MG, UNK
     Route: 042
     Dates: start: 20160413, end: 20160418
  60. ZOSYN [Concomitant]
     Active Substance: PIPERACILLIN SODIUM\TAZOBACTAM SODIUM
     Dosage: 4.5 MG, UNK
     Route: 042
     Dates: start: 20160429, end: 20160502
  61. ZOSYN [Concomitant]
     Active Substance: PIPERACILLIN SODIUM\TAZOBACTAM SODIUM
     Dosage: 4.5 MG, UNK
     Route: 042
     Dates: start: 20160429, end: 20160502
  62. CALCIUM LACTATE [Concomitant]
     Active Substance: CALCIUM LACTATE
     Dosage: 1.5 MG, UNK
     Route: 048
     Dates: start: 20160522
  63. MELPHALAN. [Suspect]
     Active Substance: MELPHALAN
     Indication: PLASMA CELL MYELOMA
     Dosage: 14 MG, UNK
     Route: 048
     Dates: start: 20160328, end: 20160512
  64. GRAN [Concomitant]
     Active Substance: FILGRASTIM
     Dosage: 150 ?G, QD
     Route: 042
     Dates: start: 20160410, end: 20160413
  65. ZOLPIDEM TARTRATE. [Concomitant]
     Active Substance: ZOLPIDEM TARTRATE
     Indication: INSOMNIA
     Dosage: 5 MG, QD
     Route: 048
     Dates: end: 20160409
  66. BAROS ANTIFOAMING [Concomitant]
     Dosage: 5 ML, UNK
     Route: 048
     Dates: start: 20160323, end: 20160323
  67. MAGMITT [Concomitant]
     Active Substance: MAGNESIUM OXIDE
     Indication: CONSTIPATION PROPHYLAXIS
     Dosage: 500 MG, TID
     Route: 048
     Dates: start: 20160329, end: 20160404
  68. LOPERAMIDE [Concomitant]
     Active Substance: LOPERAMIDE
     Indication: DIARRHOEA
     Dosage: 1 MG, BID
     Route: 048
     Dates: start: 20160423, end: 20160425
  69. CALCICOL [Concomitant]
     Active Substance: CALCIUM GLUCONATE
     Dosage: 10 ML, UNK
     Route: 042
     Dates: start: 20160520, end: 20160520
  70. BFLUID [Concomitant]
     Active Substance: AMINO ACIDS\DEXTROSE\ELECTROLYTES NOS\VITAMINS
     Indication: PROPHYLAXIS AGAINST DEHYDRATION
     Dosage: 500 ML, BID
     Route: 042
     Dates: start: 20160430, end: 20160501
  71. BFLUID [Concomitant]
     Active Substance: AMINO ACIDS\DEXTROSE\ELECTROLYTES NOS\VITAMINS
     Dosage: 500 ML, BID
     Route: 042
     Dates: start: 20160502, end: 20160502
  72. BFLUID [Concomitant]
     Active Substance: AMINO ACIDS\DEXTROSE\ELECTROLYTES NOS\VITAMINS
     Dosage: 500 ML, TID
     Route: 042
     Dates: start: 20160411, end: 20160418
  73. SAXIZON [Concomitant]
     Active Substance: HYDROCORTISONE SODIUM SUCCINATE
     Dosage: 100 MG, UNK
     Route: 042
     Dates: start: 20160415, end: 20160417
  74. SAXIZON [Concomitant]
     Active Substance: HYDROCORTISONE SODIUM SUCCINATE
     Dosage: 40 MG, UNK
     Route: 042
     Dates: start: 20160521, end: 20160529
  75. SAXIZON [Concomitant]
     Active Substance: HYDROCORTISONE SODIUM SUCCINATE
     Dosage: 100 MG, UNK
     Route: 042
     Dates: start: 20160530, end: 20160530
  76. SAXIZON [Concomitant]
     Active Substance: HYDROCORTISONE SODIUM SUCCINATE
     Dosage: 100 MG, UNK
     Route: 042
     Dates: start: 20160425, end: 20160425
  77. POLARAMINE [Concomitant]
     Active Substance: DEXCHLORPHENIRAMINE MALEATE
     Dosage: 5 MG, UNK
     Route: 042
     Dates: start: 20160501, end: 20160501
  78. POLARAMINE [Concomitant]
     Active Substance: DEXCHLORPHENIRAMINE MALEATE
     Dosage: 5 MG, UNK
     Route: 042
     Dates: start: 20160501, end: 20160501
  79. POLARAMINE [Concomitant]
     Active Substance: DEXCHLORPHENIRAMINE MALEATE
     Dosage: 5 MG, UNK
     Route: 042
     Dates: start: 20160419, end: 20160419
  80. ZOSYN [Concomitant]
     Active Substance: PIPERACILLIN SODIUM\TAZOBACTAM SODIUM
     Dosage: 4.5 MG, UNK
     Route: 042
     Dates: start: 20160428, end: 20160429
  81. DIFLUPREDNATE [Concomitant]
     Active Substance: DIFLUPREDNATE
     Dosage: UNK
     Route: 061
     Dates: start: 20160527
  82. MIYA-BM [Concomitant]
     Active Substance: CLOSTRIDIUM BUTYRICUM SPORES STRAIN M-55
     Indication: ANTIDIARRHOEAL SUPPORTIVE CARE
     Dosage: UNK, TID
     Route: 048
     Dates: start: 20160423
  83. MICARDIS [Concomitant]
     Active Substance: TELMISARTAN
     Indication: HYPERTENSION
     Dosage: 40 MG, UNK
     Route: 048
     Dates: start: 20160531, end: 20160613
  84. GRAN [Concomitant]
     Active Substance: FILGRASTIM
     Indication: PROPHYLAXIS
     Dosage: 75 ?G, UNK
     Route: 042
     Dates: start: 20160404, end: 20160404
  85. GRAN [Concomitant]
     Active Substance: FILGRASTIM
     Dosage: 150 ?G, QD
     Route: 042
     Dates: start: 20160413, end: 20160420
  86. GRAN [Concomitant]
     Active Substance: FILGRASTIM
     Dosage: 75 ?G, QD
     Route: 042
     Dates: start: 20160522, end: 20160522
  87. CALONAL [Concomitant]
     Active Substance: ACETAMINOPHEN
     Indication: PLASMA CELL MYELOMA
     Dosage: 400 MG, UNK
     Route: 048
     Dates: start: 20160322, end: 20160412
  88. CALONAL [Concomitant]
     Active Substance: ACETAMINOPHEN
     Dosage: 400 MG, UNK
     Route: 048
     Dates: start: 20160523, end: 20160607
  89. ACICLOVIR [Concomitant]
     Active Substance: ACYCLOVIR
     Dosage: 200 MG, QD
     Route: 048
     Dates: start: 20160604
  90. TERPERAN [Concomitant]
     Active Substance: METOCLOPRAMIDE HYDROCHLORIDE
     Indication: PROPHYLAXIS OF NAUSEA AND VOMITING
     Dosage: 5 MG, TID
     Route: 048
     Dates: start: 20160423, end: 20160428
  91. TERPERAN [Concomitant]
     Active Substance: METOCLOPRAMIDE HYDROCHLORIDE
     Dosage: 5 MG, TID
     Route: 048
     Dates: start: 20160429, end: 20160501
  92. TERPERAN [Concomitant]
     Active Substance: METOCLOPRAMIDE HYDROCHLORIDE
     Dosage: 5 MG, UNK
     Route: 048
     Dates: start: 20160403, end: 20160409
  93. ZOMETA [Concomitant]
     Active Substance: ZOLEDRONIC ACID
     Indication: PLASMA CELL MYELOMA
     Dosage: 3.3 MG, UNK
     Route: 042
     Dates: start: 20160405, end: 20160405
  94. PENTAZOCINE [Concomitant]
     Active Substance: PENTAZOCINE
     Indication: SPINAL COMPRESSION FRACTURE
     Dosage: 15 MG, UNK
     Route: 042
     Dates: start: 20160411, end: 20160413
  95. LOXOPROFEN SODIUM [Concomitant]
     Active Substance: LOXOPROFEN SODIUM
     Dosage: 60 MG, UNK
     Route: 048
     Dates: start: 20160506
  96. RINDERON VG [Concomitant]
     Active Substance: BETAMETHASONE VALERATE\GENTAMICIN SULFATE
     Indication: INJECTION SITE ERYTHEMA
     Dosage: UNK
     Route: 061
     Dates: start: 20160409, end: 20160419
  97. HEPAFLUSH [Concomitant]
     Active Substance: HEPARIN SODIUM
     Indication: COAGULOPATHY
     Dosage: 10 ML, UNK
     Route: 042
     Dates: start: 20160409, end: 20160409
  98. CALCICOL [Concomitant]
     Active Substance: CALCIUM GLUCONATE
     Dosage: 5 ML, UNK
     Route: 042
     Dates: start: 20160411, end: 20160412
  99. CALCICOL [Concomitant]
     Active Substance: CALCIUM GLUCONATE
     Dosage: 10 ML, UNK
     Route: 042
     Dates: start: 20160516, end: 20160516
  100. SAXIZON [Concomitant]
     Active Substance: HYDROCORTISONE SODIUM SUCCINATE
     Dosage: 100 MG, UNK
     Route: 042
     Dates: start: 20160419, end: 20160419
  101. SAXIZON [Concomitant]
     Active Substance: HYDROCORTISONE SODIUM SUCCINATE
     Dosage: 100 MG, UNK
     Route: 042
     Dates: start: 20160530, end: 20160530
  102. SAXIZON [Concomitant]
     Active Substance: HYDROCORTISONE SODIUM SUCCINATE
     Dosage: 100 MG, UNK
     Route: 042
     Dates: start: 20160428, end: 20160429
  103. POLARAMINE [Concomitant]
     Active Substance: DEXCHLORPHENIRAMINE MALEATE
     Dosage: 5 MG, UNK
     Route: 042
     Dates: start: 20160530, end: 20160530
  104. POLARAMINE [Concomitant]
     Active Substance: DEXCHLORPHENIRAMINE MALEATE
     Dosage: 5 MG, UNK
     Route: 042
     Dates: start: 20160501, end: 20160501
  105. POLARAMINE [Concomitant]
     Active Substance: DEXCHLORPHENIRAMINE MALEATE
     Dosage: 5 MG, UNK
     Route: 042
     Dates: start: 20160425, end: 20160425
  106. ZOSYN [Concomitant]
     Active Substance: PIPERACILLIN SODIUM\TAZOBACTAM SODIUM
     Indication: PROPHYLAXIS
     Dosage: 4.5 MG, UNK
     Route: 042
     Dates: start: 20160412, end: 20160412
  107. ZOSYN [Concomitant]
     Active Substance: PIPERACILLIN SODIUM\TAZOBACTAM SODIUM
     Dosage: 4.5 MG, UNK
     Route: 042
     Dates: start: 20160520, end: 20160520
  108. ZOSYN [Concomitant]
     Active Substance: PIPERACILLIN SODIUM\TAZOBACTAM SODIUM
     Dosage: 4.5 MG, UNK
     Route: 042
     Dates: start: 20160412, end: 20160412
  109. SOLDEM 3A [Concomitant]
     Active Substance: CARBOHYDRATES\POTASSIUM CHLORIDE\SODIUM CHLORIDE\SODIUM LACTATE
     Indication: DIARRHOEA
     Dosage: 500 ML, UNK
     Route: 042
     Dates: start: 20160429, end: 20160429
  110. XYZAL [Concomitant]
     Active Substance: LEVOCETIRIZINE DIHYDROCHLORIDE
     Dosage: 5 MG, UNK
     Route: 048
     Dates: start: 20160502, end: 20160508
  111. LOCOID [Concomitant]
     Active Substance: HYDROCORTISONE BUTYRATE
     Indication: RASH
     Dosage: UNK
     Route: 061
     Dates: start: 20160527, end: 20160602
  112. GRAN [Concomitant]
     Active Substance: FILGRASTIM
     Dosage: 150 ?G, QD
     Route: 042
     Dates: start: 20160409, end: 20160410
  113. CALONAL [Concomitant]
     Active Substance: ACETAMINOPHEN
     Indication: SPINAL COMPRESSION FRACTURE
     Dosage: 400 MG, UNK
     Route: 048
     Dates: start: 20160523, end: 20160607
  114. CALONAL [Concomitant]
     Active Substance: ACETAMINOPHEN
     Dosage: 400 MG, UNK
     Route: 048
     Dates: start: 20160518, end: 20160607
  115. CALONAL [Concomitant]
     Active Substance: ACETAMINOPHEN
     Dosage: 400 MG, UNK
     Route: 048
     Dates: start: 20160523, end: 20160607
  116. ACICLOVIR [Concomitant]
     Active Substance: ACYCLOVIR
     Dosage: 200 MG, QD
     Route: 048
     Dates: start: 20160412, end: 20160518
  117. TERPERAN [Concomitant]
     Active Substance: METOCLOPRAMIDE HYDROCHLORIDE
     Dosage: 5 MG, TID
     Route: 048
     Dates: start: 20160423, end: 20160428
  118. LOPERAMIDE [Concomitant]
     Active Substance: LOPERAMIDE
     Indication: PROPHYLAXIS
     Dosage: 1 G, UNK
     Route: 048
     Dates: start: 20160409, end: 20160409
  119. SOLDEM 1 [Concomitant]
     Active Substance: DEXTROSE\SODIUM CHLORIDE\SODIUM LACTATE
     Indication: OESOPHAGEAL RUPTURE
     Dosage: 500 ML, UNK
     Route: 042
     Dates: start: 20160409, end: 20160410
  120. GLUCOSE [Concomitant]
     Active Substance: DEXTROSE
     Indication: OESOPHAGEAL RUPTURE
     Dosage: 40 ML, BID
     Route: 042
     Dates: start: 20160410, end: 20160410
  121. BFLUID [Concomitant]
     Active Substance: AMINO ACIDS\DEXTROSE\ELECTROLYTES NOS\VITAMINS
     Indication: DIARRHOEA
     Dosage: 500 ML, TID
     Route: 042
     Dates: start: 20160411, end: 20160418
  122. BFLUID [Concomitant]
     Active Substance: AMINO ACIDS\DEXTROSE\ELECTROLYTES NOS\VITAMINS
     Dosage: 500 ML, BID
     Route: 042
     Dates: start: 20160430, end: 20160501
  123. SAXIZON [Concomitant]
     Active Substance: HYDROCORTISONE SODIUM SUCCINATE
     Indication: PYREXIA
     Dosage: 100 MG, UNK
     Route: 042
     Dates: start: 20160414, end: 20160414
  124. SAXIZON [Concomitant]
     Active Substance: HYDROCORTISONE SODIUM SUCCINATE
     Dosage: 40 MG, UNK
     Route: 042
     Dates: start: 20160521, end: 20160529
  125. SAXIZON [Concomitant]
     Active Substance: HYDROCORTISONE SODIUM SUCCINATE
     Dosage: 100 MG, UNK
     Route: 042
     Dates: start: 20160530, end: 20160530
  126. SAXIZON [Concomitant]
     Active Substance: HYDROCORTISONE SODIUM SUCCINATE
     Dosage: 100 MG, UNK
     Route: 042
     Dates: start: 20160301, end: 20160301
  127. SAXIZON [Concomitant]
     Active Substance: HYDROCORTISONE SODIUM SUCCINATE
     Dosage: 100 MG, UNK
     Route: 042
     Dates: start: 20160425, end: 20160425
  128. POLARAMINE [Concomitant]
     Active Substance: DEXCHLORPHENIRAMINE MALEATE
     Dosage: 100 MG, UNK
     Route: 042
     Dates: start: 20160415, end: 20160417
  129. ZOSYN [Concomitant]
     Active Substance: PIPERACILLIN SODIUM\TAZOBACTAM SODIUM
     Dosage: 4.5 MG, UNK
     Route: 042
     Dates: start: 20160521, end: 20160521
  130. ZOSYN [Concomitant]
     Active Substance: PIPERACILLIN SODIUM\TAZOBACTAM SODIUM
     Dosage: 4.5 MG, UNK
     Route: 042
     Dates: start: 20160520, end: 20160520
  131. FAMOTIDINE. [Concomitant]
     Active Substance: FAMOTIDINE
     Indication: GASTRITIS
     Dosage: 20 MG, UNK
     Route: 048
     Dates: start: 20160412
  132. CALCIUM LACTATE [Concomitant]
     Active Substance: CALCIUM LACTATE
     Dosage: 1.5 G, TID
     Route: 048
     Dates: start: 20160516, end: 20160522
  133. URSODEOXYCHOLIC ACID [Concomitant]
     Active Substance: URSODIOL
     Indication: ASPARTATE AMINOTRANSFERASE INCREASED
     Dosage: 200 MG, TID
     Route: 048
     Dates: start: 20160413, end: 20160502
  134. DIFLUPREDNATE [Concomitant]
     Active Substance: DIFLUPREDNATE
     Indication: RASH
     Dosage: UNK
     Route: 061
     Dates: start: 20160428, end: 20160509
  135. CEFTRIAXONE SODIUM. [Concomitant]
     Active Substance: CEFTRIAXONE SODIUM
     Indication: PNEUMONIA
     Dosage: 2 G, UNK
     Route: 042
     Dates: start: 20160516, end: 20160516
  136. ALFACALCIDOL [Concomitant]
     Active Substance: ALFACALCIDOL
     Indication: HYPOCALCAEMIA
     Dosage: 0.5 ?G, UNK
     Route: 048
     Dates: start: 20160521, end: 20160522
  137. PREDNISOLONE. [Suspect]
     Active Substance: PREDNISOLONE
     Indication: PLASMA CELL MYELOMA
     Dosage: 90 MG, UNK
     Route: 048
     Dates: start: 20160328, end: 20160512
  138. DIQUAS [Concomitant]
     Active Substance: DIQUAFOSOL TETRASODIUM
     Indication: DRY EYE
     Dosage: 1 UNK, UNK
     Route: 047
  139. ETIZOLAM [Concomitant]
     Active Substance: ETIZOLAM
     Indication: ANXIETY
     Dosage: 0.5 MG, UNK
     Route: 048
     Dates: start: 20160328
  140. LOXONIN [Concomitant]
     Active Substance: LOXOPROFEN SODIUM
     Indication: PLASMA CELL MYELOMA
     Dosage: UNK, QD
     Route: 061
     Dates: start: 20160322
  141. IRBESARTAN. [Concomitant]
     Active Substance: IRBESARTAN
     Indication: HYPERTENSION
     Dosage: 100 MG, QD
     Route: 048
     Dates: end: 20160409
  142. ZOLPIDEM TARTRATE. [Concomitant]
     Active Substance: ZOLPIDEM TARTRATE
     Dosage: 5 MG, QD
     Route: 048
     Dates: start: 20160411, end: 20160515
  143. CALONAL [Concomitant]
     Active Substance: ACETAMINOPHEN
     Dosage: 400 MG, UNK
     Route: 048
     Dates: start: 20160322, end: 20160412
  144. BAROS ANTIFOAMING [Concomitant]
     Indication: COLONOSCOPY
     Dosage: 5 ML, UNK
     Route: 048
     Dates: start: 20160411, end: 20160411
  145. ANETOCAINE [Concomitant]
     Dosage: 30 ML, UNK
     Route: 050
     Dates: start: 20160323, end: 20160323
  146. TERPERAN [Concomitant]
     Active Substance: METOCLOPRAMIDE HYDROCHLORIDE
     Dosage: UNK
     Route: 048
  147. METHYCOBAL [Concomitant]
     Active Substance: METHYLCOBALAMIN
     Indication: VITAMIN B12 DECREASED
     Dosage: 0.5 MG, UNK
     Route: 042
     Dates: start: 20160405, end: 20160405
  148. ATARAX [Concomitant]
     Active Substance: HYDROXYZINE HYDROCHLORIDE
     Indication: SPINAL COMPRESSION FRACTURE
     Dosage: 2.5 MG, UNK
     Route: 042
     Dates: start: 20160411, end: 20160413
  149. LOPERAMIDE [Concomitant]
     Active Substance: LOPERAMIDE
     Dosage: 1 G, UNK
     Route: 048
     Dates: start: 20160409, end: 20160409
  150. LOPERAMIDE [Concomitant]
     Active Substance: LOPERAMIDE
     Dosage: 1 MG, BID
     Route: 048
     Dates: start: 20160430, end: 20160501
  151. OMEPRAZOLE. [Concomitant]
     Active Substance: OMEPRAZOLE
     Indication: OESOPHAGEAL RUPTURE
     Dosage: 20 MG, BID
     Route: 042
     Dates: start: 20160409, end: 20160411
  152. SAXIZON [Concomitant]
     Active Substance: HYDROCORTISONE SODIUM SUCCINATE
     Dosage: 100 MG, UNK
     Route: 042
     Dates: start: 20160414, end: 20160414
  153. SAXIZON [Concomitant]
     Active Substance: HYDROCORTISONE SODIUM SUCCINATE
     Dosage: 100 MG, UNK
     Route: 042
     Dates: start: 20160419, end: 20160419
  154. SAXIZON [Concomitant]
     Active Substance: HYDROCORTISONE SODIUM SUCCINATE
     Dosage: 100 MG, UNK
     Route: 042
     Dates: start: 20160415, end: 20160417
  155. POLARAMINE [Concomitant]
     Active Substance: DEXCHLORPHENIRAMINE MALEATE
     Indication: TRANSFUSION REACTION
     Dosage: 5 MG, UNK
     Route: 042
     Dates: start: 20160425, end: 20160425
  156. POLARAMINE [Concomitant]
     Active Substance: DEXCHLORPHENIRAMINE MALEATE
     Dosage: 5 MG, UNK
     Route: 042
     Dates: start: 20160425, end: 20160425
  157. ZOSYN [Concomitant]
     Active Substance: PIPERACILLIN SODIUM\TAZOBACTAM SODIUM
     Dosage: 4.5 MG, UNK
     Route: 042
     Dates: start: 20160413, end: 20160418
  158. XYZAL [Concomitant]
     Active Substance: LEVOCETIRIZINE DIHYDROCHLORIDE
     Indication: RASH
     Dosage: 5 MG, UNK
     Route: 048
     Dates: start: 20160502, end: 20160508
  159. XYZAL [Concomitant]
     Active Substance: LEVOCETIRIZINE DIHYDROCHLORIDE
     Dosage: 5 MG, UNK
     Route: 048
     Dates: start: 20160527, end: 20160603
  160. XYZAL [Concomitant]
     Active Substance: LEVOCETIRIZINE DIHYDROCHLORIDE
     Dosage: 5 MG, UNK
     Route: 048
     Dates: start: 20160604, end: 20160616
  161. FUROSEMIDE. [Concomitant]
     Active Substance: FUROSEMIDE
     Indication: OEDEMA PERIPHERAL
     Dosage: 20 MG, UNK
     Route: 048
     Dates: start: 20160515, end: 20160518
  162. ALFACALCIDOL [Concomitant]
     Active Substance: ALFACALCIDOL
     Dosage: 0.5 ?G, UNK
     Route: 048
     Dates: start: 20160522
  163. CEFEPIME HYDROCHLORIDE. [Concomitant]
     Active Substance: CEFEPIME HYDROCHLORIDE
     Indication: PNEUMONIA
     Dosage: 1 G, BID
     Route: 042
     Dates: start: 20160522, end: 20160526
  164. ALBUMIN HUMAN [Concomitant]
     Active Substance: ALBUMIN HUMAN
     Indication: HYPOALBUMINAEMIA
     Dosage: 12.5 MG, UNK
     Route: 042
     Dates: start: 20160526, end: 20160526
  165. K-SUPPLY [Concomitant]
     Active Substance: POTASSIUM CHLORIDE
     Indication: HYPOKALAEMIA
     Dosage: 1200 MG, TID
     Route: 048
     Dates: start: 20160603, end: 20160621
  166. VELCADE [Suspect]
     Active Substance: BORTEZOMIB
     Indication: PLASMA CELL MYELOMA
     Dosage: 2 MG, UNK
     Route: 058
     Dates: start: 20160328, end: 20160509
  167. AMLODIPINE [Concomitant]
     Active Substance: AMLODIPINE BESYLATE
     Dosage: 10 MG, QD
     Route: 048
     Dates: start: 20160412, end: 20160515
  168. AMLODIPINE [Concomitant]
     Active Substance: AMLODIPINE BESYLATE
     Dosage: 5 MG, QD
     Route: 048
     Dates: start: 20160603, end: 20160613
  169. ANETOCAINE [Concomitant]
     Indication: ENDOSCOPY UPPER GASTROINTESTINAL TRACT
     Dosage: 30 ML, UNK
     Route: 050
     Dates: start: 20160323, end: 20160323
  170. ANETOCAINE [Concomitant]
     Dosage: 30 ML, UNK
     Route: 050
     Dates: start: 20160411, end: 20160411
  171. TERPERAN [Concomitant]
     Active Substance: METOCLOPRAMIDE HYDROCHLORIDE
     Dosage: 5 MG, UNK
     Route: 048
     Dates: start: 20160508, end: 20160520
  172. NIFLEC [Concomitant]
     Active Substance: BICARBONATE ION\POLYETHYLENE GLYCOLS\POTASSIUM CATION\SODIUM CHLORIDE\SODIUM SULFATE ANHYDROUS
     Indication: COLONOSCOPY
     Dosage: UNK
     Route: 048
     Dates: start: 20160323, end: 20160323
  173. LOXOPROFEN SODIUM [Concomitant]
     Active Substance: LOXOPROFEN SODIUM
     Indication: SPINAL COMPRESSION FRACTURE
     Dosage: 60 MG, UNK
     Route: 048
     Dates: start: 20160411, end: 20160413
  174. RINDERON VG [Concomitant]
     Active Substance: BETAMETHASONE VALERATE\GENTAMICIN SULFATE
     Dosage: UNK
     Route: 061
     Dates: start: 20160423, end: 20160427
  175. CALCICOL [Concomitant]
     Active Substance: CALCIUM GLUCONATE
     Indication: PROPHYLAXIS
     Dosage: 5 ML, UNK
     Route: 042
     Dates: start: 20160411, end: 20160412
  176. BFLUID [Concomitant]
     Active Substance: AMINO ACIDS\DEXTROSE\ELECTROLYTES NOS\VITAMINS
     Dosage: 500 ML, BID
     Route: 042
     Dates: start: 20160502, end: 20160502
  177. SAXIZON [Concomitant]
     Active Substance: HYDROCORTISONE SODIUM SUCCINATE
     Dosage: 100 MG, UNK
     Route: 042
     Dates: start: 20160419, end: 20160419
  178. POLARAMINE [Concomitant]
     Active Substance: DEXCHLORPHENIRAMINE MALEATE
     Indication: PROPHYLAXIS
     Dosage: 5 MG, UNK
     Route: 042
     Dates: start: 20160419, end: 20160419
  179. POLARAMINE [Concomitant]
     Active Substance: DEXCHLORPHENIRAMINE MALEATE
     Dosage: 5 MG, UNK
     Route: 042
     Dates: start: 20160519, end: 20160519
  180. POLARAMINE [Concomitant]
     Active Substance: DEXCHLORPHENIRAMINE MALEATE
     Dosage: 5 MG, UNK
     Route: 042
     Dates: start: 20160530, end: 20160530
  181. POLARAMINE [Concomitant]
     Active Substance: DEXCHLORPHENIRAMINE MALEATE
     Dosage: 100 MG, UNK
     Route: 042
     Dates: start: 20160415, end: 20160417
  182. ZOSYN [Concomitant]
     Active Substance: PIPERACILLIN SODIUM\TAZOBACTAM SODIUM
     Dosage: 4.5 MG, UNK
     Route: 042
     Dates: start: 20160428, end: 20160429
  183. ZOSYN [Concomitant]
     Active Substance: PIPERACILLIN SODIUM\TAZOBACTAM SODIUM
     Dosage: 4.5 MG, UNK
     Route: 042
     Dates: start: 20160521, end: 20160521
  184. K-SUPPLY [Concomitant]
     Active Substance: POTASSIUM CHLORIDE
     Dosage: 1200 MG, TID
     Route: 048
     Dates: start: 20160531, end: 20160603
  185. GRAN [Concomitant]
     Active Substance: FILGRASTIM
     Dosage: 150 ?G, QD
     Route: 042
     Dates: start: 20160420, end: 20160422
  186. GRAN [Concomitant]
     Active Substance: FILGRASTIM
     Dosage: 150 ?G, QD
     Route: 042
     Dates: start: 20160422, end: 20160428
  187. BAROS ANTIFOAMING [Concomitant]
     Dosage: 5 ML, UNK
     Route: 048
     Dates: start: 20160411, end: 20160411
  188. BAKTAR [Concomitant]
     Active Substance: SULFAMETHOXAZOLE\TRIMETHOPRIM
     Dosage: UNK
     Route: 048
     Dates: start: 20160411
  189. TERPERAN [Concomitant]
     Active Substance: METOCLOPRAMIDE HYDROCHLORIDE
     Dosage: 5 MG, UNK
     Route: 048
     Dates: start: 20160508, end: 20160520
  190. TERPERAN [Concomitant]
     Active Substance: METOCLOPRAMIDE HYDROCHLORIDE
     Dosage: 5 MG, UNK
     Route: 048
     Dates: start: 20160428, end: 20160429
  191. LOPERAMIDE [Concomitant]
     Active Substance: LOPERAMIDE
     Dosage: 1 MG, BID
     Route: 048
     Dates: start: 20160423, end: 20160425
  192. BUSCOPAN [Concomitant]
     Active Substance: BUTYLSCOPOLAMINE BROMIDE
     Indication: DIARRHOEA
     Dosage: 20 MG, UNK
     Route: 042
     Dates: start: 20160411, end: 20160411
  193. CALCICOL [Concomitant]
     Active Substance: CALCIUM GLUCONATE
     Dosage: 10 ML, UNK
     Route: 042
     Dates: start: 20160520, end: 20160520
  194. SAXIZON [Concomitant]
     Active Substance: HYDROCORTISONE SODIUM SUCCINATE
     Indication: RASH
     Dosage: 100 MG, UNK
     Route: 042
     Dates: start: 20160425, end: 20160425
  195. SAXIZON [Concomitant]
     Active Substance: HYDROCORTISONE SODIUM SUCCINATE
     Dosage: 100 MG, UNK
     Route: 042
     Dates: start: 20160501, end: 20160501
  196. SAXIZON [Concomitant]
     Active Substance: HYDROCORTISONE SODIUM SUCCINATE
     Dosage: 100 MG, UNK
     Route: 042
     Dates: start: 20160501, end: 20160501
  197. SAXIZON [Concomitant]
     Active Substance: HYDROCORTISONE SODIUM SUCCINATE
     Dosage: 40 MG, UNK
     Route: 042
     Dates: start: 20160521, end: 20160529
  198. SAXIZON [Concomitant]
     Active Substance: HYDROCORTISONE SODIUM SUCCINATE
     Dosage: 100 MG, UNK
     Route: 042
     Dates: start: 20160415, end: 20160417
  199. ZOSYN [Concomitant]
     Active Substance: PIPERACILLIN SODIUM\TAZOBACTAM SODIUM
     Indication: FEBRILE NEUTROPENIA
     Dosage: 4.5 MG, UNK
     Route: 042
     Dates: start: 20160428, end: 20160429
  200. URSODEOXYCHOLIC ACID [Concomitant]
     Active Substance: URSODIOL
     Indication: ALANINE AMINOTRANSFERASE INCREASED
     Dosage: 200 MG, TID
     Route: 048
     Dates: start: 20160413, end: 20160502
  201. FEBURIC [Concomitant]
     Active Substance: FEBUXOSTAT
     Indication: HYPERURICAEMIA
     Dosage: 10 MG, UNK
     Route: 048
     Dates: start: 20160428, end: 20160503
  202. XYZAL [Concomitant]
     Active Substance: LEVOCETIRIZINE DIHYDROCHLORIDE
     Dosage: 5 MG, UNK
     Route: 048
     Dates: start: 20160604, end: 20160616
  203. GENINAX [Concomitant]
     Active Substance: GARENOXACIN MESYLATE
     Indication: PNEUMONIA
     Dosage: 400 MG, UNK
     Route: 048
     Dates: start: 20160516, end: 20160517

REACTIONS (20)
  - Relapsing fever [Unknown]
  - Hypoalbuminaemia [Unknown]
  - Vomiting [Unknown]
  - Oedema peripheral [Unknown]
  - Neutrophil count decreased [Unknown]
  - Spinal compression fracture [Unknown]
  - Hypocalcaemia [Unknown]
  - Generalised oedema [Unknown]
  - Cardiac failure [Recovered/Resolved]
  - Febrile neutropenia [Unknown]
  - Pleural effusion [Unknown]
  - Rash generalised [Unknown]
  - Diarrhoea [Unknown]
  - Injection site erythema [Unknown]
  - Oesophageal rupture [Recovered/Resolved]
  - Pneumonia [Unknown]
  - Aspartate aminotransferase increased [Unknown]
  - Rash [Unknown]
  - Alanine aminotransferase increased [Unknown]
  - Hypokalaemia [Unknown]

NARRATIVE: CASE EVENT DATE: 20160401
